FAERS Safety Report 24395468 (Version 1)
Quarter: 2024Q4

REPORT INFORMATION
  Report Type: Spontaneous
  Country: SE (occurrence: SE)
  Receive Date: 20241004
  Receipt Date: 20241004
  Transmission Date: 20250114
  Serious: Yes (Hospitalization, Other)
  Sender: JUBILANT
  Company Number: SE-JUBILANT CADISTA PHARMACEUTICALS-2024SE001378

PATIENT

DRUGS (1)
  1. LAMOTRIGINE [Suspect]
     Active Substance: LAMOTRIGINE
     Indication: Maternal exposure during breast feeding
     Dosage: UNK,UNK
     Route: 065

REACTIONS (3)
  - Neonatal hypotension [Recovered/Resolved]
  - Fatigue [Recovered/Resolved]
  - Exposure via breast milk [Unknown]
